FAERS Safety Report 6576829 (Version 3)
Quarter: 2012Q4

REPORT INFORMATION
  Report Type: 
  Country: DE (occurrence: DE)
  Receive Date: 20080311
  Receipt Date: 20120830
  Transmission Date: 20130627
  Serious: Yes (Hospitalization, Other)
  Sender: FDA-Public Use
  Company Number: PHNU2008DE01203

PATIENT
  Sex: Female

DRUGS (1)
  1. ISMELIN I.V. [Suspect]
     Indication: ANGIOPATHY
     Route: 042
     Dates: start: 200710

REACTIONS (11)
  - Myocardial infarction [Unknown]
  - Chest discomfort [Unknown]
  - Angina pectoris [Unknown]
  - Tendon rupture [Unknown]
  - Pain in extremity [Unknown]
  - Limb discomfort [Unknown]
  - Cardiac arrest [Unknown]
  - Lung disorder [Unknown]
  - Erythema [Unknown]
  - Oedema peripheral [Unknown]
  - Myalgia [Unknown]
